FAERS Safety Report 17741986 (Version 1)
Quarter: 2020Q2

REPORT INFORMATION
  Report Type: Spontaneous
  Country: US (occurrence: US)
  Receive Date: 20200504
  Receipt Date: 20200504
  Transmission Date: 20200714
  Serious: Yes (Congenital Anomaly, Other)
  Sender: FDA-Public Use
  Company Number: US-SLATE RUN PHARMACEUTICALS-20US000026

PATIENT

DRUGS (1)
  1. AZITHROMYCIN USP [Suspect]
     Active Substance: AZITHROMYCIN
     Indication: MATERNAL EXPOSURE TIMING UNSPECIFIED
     Route: 064

REACTIONS (23)
  - Jaundice neonatal [Unknown]
  - Microcephaly [Unknown]
  - Ammonia increased [Recovered/Resolved]
  - Sensory processing disorder [Recovered/Resolved]
  - Hypotonia [Unknown]
  - Sleep apnoea syndrome [Unknown]
  - Insulin-like growth factor decreased [Recovered/Resolved]
  - Stereotypy [Unknown]
  - Developmental delay [Recovering/Resolving]
  - Febrile convulsion [Recovered/Resolved]
  - Weight gain poor [Unknown]
  - General physical condition abnormal [Unknown]
  - Congenital nose malformation [Unknown]
  - Blood lactic acid increased [Recovered/Resolved]
  - Micrognathia [Unknown]
  - Seizure [Recovered/Resolved]
  - Speech disorder developmental [Unknown]
  - Disturbance in social behaviour [Unknown]
  - Asthma [Unknown]
  - Cognitive disorder [Unknown]
  - Ear infection [Recovered/Resolved]
  - Communication disorder [Unknown]
  - Fall [Recovering/Resolving]
